FAERS Safety Report 25218469 (Version 2)
Quarter: 2025Q2

REPORT INFORMATION
  Report Type: Spontaneous
  Country: US (occurrence: US)
  Receive Date: 20250421
  Receipt Date: 20250501
  Transmission Date: 20250717
  Serious: Yes (Life-Threatening)
  Sender: TEVA
  Company Number: US-TEVA-VS-3322927

PATIENT
  Age: 30 Year
  Sex: Male

DRUGS (3)
  1. LEVOCARNITINE [Suspect]
     Active Substance: LEVOCARNITINE
     Indication: Mitochondrial enzyme deficiency
     Route: 065
  2. DILTIAZEM [Suspect]
     Active Substance: DILTIAZEM
     Indication: Atrial fibrillation
     Route: 065
  3. DEXTROSE [Suspect]
     Active Substance: DEXTROSE MONOHYDRATE
     Indication: Cardiogenic shock
     Route: 065

REACTIONS (2)
  - Cardiogenic shock [Recovering/Resolving]
  - Drug ineffective [Unknown]
